FAERS Safety Report 9413160 (Version 1)
Quarter: 2013Q3

REPORT INFORMATION
  Report Type: Report from Study
  Country: GB (occurrence: GB)
  Receive Date: 20130722
  Receipt Date: 20130722
  Transmission Date: 20140515
  Serious: Yes (Other)
  Sender: FDA-Public Use
  Company Number: GB-BAYER-2013-088080

PATIENT
  Sex: Female

DRUGS (1)
  1. MIRENA [Suspect]
     Dosage: UNK
     Dates: end: 2013

REACTIONS (24)
  - Urinary tract infection [Not Recovered/Not Resolved]
  - Anxiety [Recovered/Resolved]
  - Gastric ulcer [Recovering/Resolving]
  - Pain [Recovered/Resolved]
  - Paraesthesia [None]
  - Hypoaesthesia [None]
  - Insomnia [Recovered/Resolved]
  - Depressed mood [None]
  - Crying [None]
  - Panic attack [Recovered/Resolved]
  - Tremor [None]
  - Paraesthesia [None]
  - Abdominal pain lower [None]
  - Pain [None]
  - Back pain [None]
  - Menstruation delayed [None]
  - Menometrorrhagia [None]
  - Dyspepsia [Recovered/Resolved]
  - Dysmenorrhoea [None]
  - Abdominal pain [Recovering/Resolving]
  - Ovulation pain [None]
  - Abdominal distension [None]
  - Asthenia [None]
  - Weight decreased [None]
